FAERS Safety Report 7496379-7 (Version None)
Quarter: 2011Q2

REPORT INFORMATION
  Report Type: 
  Country: None (occurrence: None)
  Receive Date: 20110520
  Receipt Date: 20110520
  Transmission Date: 20111010
  Serious: Yes (Life-Threatening)
  Sender: FDA-Public Use
  Company Number: None

PATIENT
  Sex: Female
  Weight: 89.3586 kg

DRUGS (1)
  1. BENDAMUSTINE [Suspect]
     Indication: NON-HODGKIN'S LYMPHOMA
     Dosage: 120 MG/M^2 IV QD X 2 DOSES Q. 21 DAYS IV
     Route: 042
     Dates: start: 20100921, end: 20110105

REACTIONS (4)
  - PNEUMOCYSTIS JIROVECI PNEUMONIA [None]
  - CD4 LYMPHOCYTES DECREASED [None]
  - LYMPHOPENIA [None]
  - PNEUMONIA CYTOMEGALOVIRAL [None]
